FAERS Safety Report 25529858 (Version 1)
Quarter: 2025Q3

REPORT INFORMATION
  Report Type: Spontaneous
  Country: US (occurrence: US)
  Receive Date: 20250708
  Receipt Date: 20250708
  Transmission Date: 20251020
  Serious: No
  Sender: TEVA
  Company Number: US-TEVA-VS-3347730

PATIENT
  Sex: Female

DRUGS (1)
  1. ETHYNODIOL DIACETATE AND ETHINYL ESTRADIOL [Suspect]
     Active Substance: ETHINYL ESTRADIOL\ETHYNODIOL DIACETATE
     Indication: Product used for unknown indication
     Route: 065

REACTIONS (4)
  - Mood swings [Unknown]
  - Anger [Unknown]
  - Discomfort [Unknown]
  - Menstrual disorder [Unknown]
